FAERS Safety Report 4372939-7 (Version None)
Quarter: 2004Q2

REPORT INFORMATION
  Report Type: 
  Country: None (occurrence: None)
  Receive Date: 20040603
  Receipt Date: 20040526
  Transmission Date: 20050107
  Serious: Yes (Hospitalization)
  Sender: FDA-Public Use
  Company Number: 2004-BP-04163RO

PATIENT
  Age: 57 Year
  Sex: Male
  Weight: 91.63 kg

DRUGS (4)
  1. PREDNISONE [Suspect]
     Indication: RENAL DISORDER
     Dosage: 2 TABS QAM, 2 TABS QPM (20 MG), PO
     Route: 048
     Dates: start: 20031029, end: 20040101
  2. DIOVAN [Concomitant]
  3. ALTACE [Concomitant]
  4. SYNTHROID [Concomitant]

REACTIONS (5)
  - BLOOD GLUCOSE INCREASED [None]
  - CHILLS [None]
  - HEADACHE [None]
  - INTESTINAL PERFORATION [None]
  - PNEUMONIA [None]
